FAERS Safety Report 7150061-4 (Version None)
Quarter: 2010Q4

REPORT INFORMATION
  Report Type: 
  Country: None (occurrence: None)
  Receive Date: 20101210
  Receipt Date: 20101203
  Transmission Date: 20110411
  Serious: No
  Sender: FDA-Public Use
  Company Number: US-PFIZER INC-2010164173

PATIENT
  Sex: Female
  Weight: 77.1 kg

DRUGS (4)
  1. LYRICA [Suspect]
     Indication: PAIN
     Dosage: 75 MG, 3X/DAY
     Route: 048
     Dates: start: 20101201
  2. GABAPENTIN [Suspect]
     Indication: PAIN
     Dosage: 600 MG, 3X/DAY
     Route: 048
     Dates: end: 20101201
  3. CLONAZEPAM [Concomitant]
     Indication: SLEEP DISORDER
     Dosage: 1 MG, 1X/DAY
  4. ESTROGENS [Concomitant]
     Dosage: UNK

REACTIONS (3)
  - DIZZINESS [None]
  - FATIGUE [None]
  - INTERVERTEBRAL DISC PROTRUSION [None]
